FAERS Safety Report 23447940 (Version 1)
Quarter: 2024Q1

REPORT INFORMATION
  Report Type: Spontaneous
  Country: US (occurrence: None)
  Receive Date: 20240126
  Receipt Date: 20240126
  Transmission Date: 20240409
  Serious: Yes (Life-Threatening)
  Sender: FDA-Public Use
  Company Number: None

PATIENT
  Age: 40 Year
  Sex: Female
  Weight: 99.8 kg

DRUGS (1)
  1. DEFINITY [Suspect]
     Active Substance: PERFLUTREN
     Indication: Cardiac stress test
     Dates: start: 20231122, end: 20231122

REACTIONS (2)
  - Dizziness [None]
  - Cardiac arrest [None]

NARRATIVE: CASE EVENT DATE: 20231122
